FAERS Safety Report 17019133 (Version 2)
Quarter: 2020Q1

REPORT INFORMATION
  Report Type: Report from Study
  Country: US (occurrence: US)
  Receive Date: 20191112
  Receipt Date: 20200116
  Transmission Date: 20200409
  Serious: Yes (Other)
  Sender: FDA-Public Use
  Company Number: US-ROCHE-2468051

PATIENT
  Age: 69 Year
  Sex: Female
  Weight: 51.3 kg

DRUGS (2)
  1. BEVACIZUMAB. [Suspect]
     Active Substance: BEVACIZUMAB
     Indication: RENAL CELL CARCINOMA
     Route: 042
     Dates: start: 20170901, end: 20191023
  2. ERLOTINIB [Suspect]
     Active Substance: ERLOTINIB
     Indication: RENAL CELL CARCINOMA
     Route: 048
     Dates: start: 20170901

REACTIONS (1)
  - Urine protein/creatinine ratio abnormal [Unknown]

NARRATIVE: CASE EVENT DATE: 20191022
